FAERS Safety Report 19886514 (Version 1)
Quarter: 2021Q3

REPORT INFORMATION
  Report Type: Spontaneous
  Country: IT (occurrence: IT)
  Receive Date: 20210927
  Receipt Date: 20210927
  Transmission Date: 20211014
  Serious: Yes (Other)
  Sender: FDA-Public Use
  Company Number: IT-MYLANLABS-2021M1064585

PATIENT
  Age: 72 Year
  Sex: Male
  Weight: 64 kg

DRUGS (9)
  1. PACLITAXEL. [Suspect]
     Active Substance: PACLITAXEL
     Dosage: 80 MG/MQ,  OTHER (DAY 1, 8 AND 15 )
     Route: 042
     Dates: start: 20201001, end: 20201112
  2. BISOPROLOL [Concomitant]
     Active Substance: BISOPROLOL
     Indication: STENOSIS
     Dosage: UNK
     Route: 065
  3. METFORMIN [Concomitant]
     Active Substance: METFORMIN HYDROCHLORIDE
     Indication: TYPE 2 DIABETES MELLITUS
     Dosage: UNK
     Route: 065
  4. CARDIOASPIRIN [Concomitant]
     Active Substance: ASPIRIN
     Indication: STENOSIS
     Dosage: UNK
     Route: 065
  5. PACLITAXEL. [Suspect]
     Active Substance: PACLITAXEL
     Indication: ADENOCARCINOMA
     Dosage: 80 MG/MQ,  OTHER (DAY 1, 8 AND 15 )
     Route: 042
     Dates: start: 20200806, end: 20200917
  6. RAMUCIRUMAB [Suspect]
     Active Substance: RAMUCIRUMAB
     Dosage: 8 MG/KG, OTHER (DAY 1 AND 15 OF EVERY 28DAYS)
     Route: 042
     Dates: start: 20201001, end: 20201112
  7. TORVAST [Concomitant]
     Active Substance: ATORVASTATIN
     Indication: STENOSIS
     Dosage: UNK
     Route: 065
  8. AMLODIPINE [Concomitant]
     Active Substance: AMLODIPINE BESYLATE
     Indication: HYPERTENSION
     Dosage: UNK
     Route: 065
  9. RAMUCIRUMAB [Suspect]
     Active Substance: RAMUCIRUMAB
     Indication: ADENOCARCINOMA
     Dosage: 8 MG/KG, OTHER (DAY 1 AND 15 OF EVERY 28DAYS)
     Route: 042
     Dates: start: 20200806, end: 20200917

REACTIONS (4)
  - Anaemia [Unknown]
  - Malignant neoplasm progression [Unknown]
  - Epistaxis [Unknown]
  - Blood pressure increased [Unknown]
